FAERS Safety Report 9881870 (Version 2)
Quarter: 2014Q1

REPORT INFORMATION
  Report Type: Spontaneous
  Country: US (occurrence: US)
  Receive Date: 20140207
  Receipt Date: 20140220
  Transmission Date: 20141002
  Serious: Yes (Death, Hospitalization, Other)
  Sender: FDA-Public Use
  Company Number: US-B.I. PHARMACEUTICALS,INC./RIDGEFIELD-2014-BI-05394BP

PATIENT
  Age: 40 Year
  Sex: Female

DRUGS (12)
  1. COMBIVENT [Suspect]
     Indication: ASTHMA
     Dosage: STRENGTH: 20 MCG / 100 MCG; DAILY DOSE: 80 MCG / 400 MCG
     Route: 055
     Dates: start: 201308
  2. COMBIVENT [Suspect]
     Indication: ASTHMA
     Dosage: STRENGTH: 18 MCG / 103 MCG; DAILY DOSE: 144 MCG / 824 MCG
     Route: 055
     Dates: start: 201302, end: 201308
  3. LISINOPRIL [Concomitant]
     Route: 048
  4. VISTARIL [Concomitant]
     Route: 048
  5. FLEXERIL [Concomitant]
     Route: 048
  6. SINGULAIR [Concomitant]
     Route: 048
  7. DEPAKOTE [Concomitant]
     Route: 048
  8. ZOLOFT [Concomitant]
     Route: 048
  9. NASONEX [Concomitant]
     Dosage: FORMULATION: (NASAL SPRAY)
     Route: 045
  10. METOPROLOL [Concomitant]
     Route: 048
  11. CLARINEX [Concomitant]
     Route: 048
  12. ADVAIR [Concomitant]
     Route: 055

REACTIONS (3)
  - Post procedural complication [Fatal]
  - Staphylococcal infection [Unknown]
  - Off label use [Unknown]
